FAERS Safety Report 4499720-2 (Version None)
Quarter: 2004Q4

REPORT INFORMATION
  Report Type: 
  Country: None (occurrence: None)
  Receive Date: 20041108
  Receipt Date: 20041022
  Transmission Date: 20050328
  Serious: No
  Sender: FDA-Public Use
  Company Number: OSCN-NO-0408S-0210

PATIENT
  Age: 47 Year
  Sex: Female

DRUGS (3)
  1. OMNISCAN [Suspect]
     Indication: BRAIN NEOPLASM
     Dosage: 10 ML, SINGLE DOSE, I.V.
     Route: 042
     Dates: start: 20040816, end: 20040816
  2. D-MANNITOL (MANNIGEN INJECTION) [Concomitant]
  3. DECADRON [Concomitant]

REACTIONS (3)
  - ASTHENIA [None]
  - SENSORY DISTURBANCE [None]
  - TUMOUR HAEMORRHAGE [None]
